FAERS Safety Report 8815563 (Version 1)
Quarter: 2012Q4

REPORT INFORMATION
  Report Type: 
  Country: US (occurrence: US)
  Receive Date: 20120928
  Receipt Date: 20120928
  Transmission Date: 20130627
  Serious: Yes (Death, Life-Threatening, Disabling)
  Sender: FDA-Public Use
  Company Number: US-MERCK-1209USA008925

PATIENT
  Age: 36 Year
  Sex: Male

DRUGS (1)
  1. PROPECIA [Suspect]
     Indication: ANDROGENETIC ALOPECIA
     Dosage: 1 mg, qd
     Route: 048
     Dates: start: 1999, end: 2002

REACTIONS (5)
  - Completed suicide [Fatal]
  - Mental disorder [Fatal]
  - Depression [Fatal]
  - Apathy [Fatal]
  - Sexual dysfunction [Fatal]
